FAERS Safety Report 9085893 (Version 1)
Quarter: 2013Q1

REPORT INFORMATION
  Report Type: Report from Study
  Country: US (occurrence: US)
  Receive Date: 20130130
  Receipt Date: 20130130
  Transmission Date: 20140127
  Serious: No
  Sender: FDA-Public Use
  Company Number: US-ABBOTT-12P-163-0985444-00

PATIENT
  Age: 48 Year
  Sex: Female

DRUGS (5)
  1. HUMIRA [Suspect]
     Indication: PSORIASIS
     Dosage: 2 PENS DAY 1
     Dates: start: 201209, end: 201209
  2. HUMIRA [Suspect]
     Dosage: 1 PEN DAY 8
  3. HUMIRA [Suspect]
     Dosage: 1 PEN DAY 22
  4. HUMIRA [Suspect]
     Dosage: MAINTENANCE
  5. METHOTREXATE [Concomitant]
     Indication: PRODUCT USED FOR UNKNOWN INDICATION

REACTIONS (2)
  - Fatigue [Unknown]
  - Headache [Unknown]
